FAERS Safety Report 4590091-X (Version None)
Quarter: 2005Q1

REPORT INFORMATION
  Report Type: 
  Country: None (occurrence: None)
  Receive Date: 20050217
  Receipt Date: 20050209
  Transmission Date: 20050727
  Serious: Yes (Other)
  Sender: FDA-Public Use
  Company Number: 211027

PATIENT
  Age: 67 Year
  Sex: Female

DRUGS (6)
  1. RITUXAN [Suspect]
     Indication: LYMPHOMA
     Dosage: 375 MG/M2, Q4W, INTRAVENOUS
     Route: 042
  2. FLUDARABINE PHOSPHATE [Concomitant]
  3. MITOXANTRONE [Concomitant]
  4. DEXAMETHASONE [Concomitant]
  5. G-CSF (FILGRASTIM) [Concomitant]
  6. LENOGRASTIM (LENOGRASTIM) [Concomitant]

REACTIONS (1)
  - ANAPHYLACTIC REACTION [None]
